FAERS Safety Report 9926603 (Version 1)
Quarter: 2014Q1

REPORT INFORMATION
  Report Type: Spontaneous
  Country: US (occurrence: US)
  Receive Date: 20140226
  Receipt Date: 20140226
  Transmission Date: 20141002
  Serious: No
  Sender: FDA-Public Use
  Company Number: US-AMGEN-USASP2013075089

PATIENT
  Age: 54 Year
  Sex: Male

DRUGS (2)
  1. ENBREL [Suspect]
     Indication: PSORIASIS
     Dosage: UNK UNK, QWK
     Route: 065
     Dates: start: 20060201, end: 2007
  2. HUMIRA [Suspect]
     Indication: PSORIASIS
     Route: 065

REACTIONS (2)
  - White blood cell count increased [Recovered/Resolved]
  - Psoriasis [Recovered/Resolved]
